FAERS Safety Report 5087497-1 (Version None)
Quarter: 2006Q3

REPORT INFORMATION
  Report Type: 
  Country: None (occurrence: None)
  Receive Date: 20060824
  Receipt Date: 20030623
  Transmission Date: 20061208
  Serious: Yes (Hospitalization)
  Sender: FDA-Public Use
  Company Number: 12307930

PATIENT
  Age: 23 Year
  Sex: Male

DRUGS (4)
  1. AMPICILLIN [Suspect]
     Indication: UPPER RESPIRATORY TRACT INFECTION
     Route: 048
  2. AMPICILLIN [Suspect]
     Indication: TOOTH DISORDER
     Route: 048
  3. ACETAMINOPHEN [Concomitant]
  4. NAPROXEN [Concomitant]

REACTIONS (1)
  - CHOLESTASIS [None]
